FAERS Safety Report 9790142 (Version 1)
Quarter: 2013Q4

REPORT INFORMATION
  Report Type: Spontaneous
  Country: GB (occurrence: GB)
  Receive Date: 20131231
  Receipt Date: 20131231
  Transmission Date: 20140711
  Serious: Yes (Other)
  Sender: FDA-Public Use
  Company Number: GB-B.I. PHARMACEUTICALS,INC./RIDGEFIELD-2013-BI-43684UK

PATIENT
  Age: 78 Year
  Sex: Male
  Weight: 81 kg

DRUGS (13)
  1. LINAGLIPTIN [Suspect]
     Indication: DIABETES MELLITUS
     Route: 048
     Dates: start: 20131105, end: 20131205
  2. ASPIRIN [Concomitant]
  3. CITALOPRAM [Concomitant]
  4. GLICLAZIDE [Concomitant]
  5. CEFALEXIN [Concomitant]
  6. INSULATARD PORCINE [Concomitant]
  7. LANSOPRAZOLE [Concomitant]
  8. MAGNESIUM HYDROXIDE [Concomitant]
  9. NITROFURANTOIN [Concomitant]
  10. SENNA [Concomitant]
  11. SIMVASTATIN [Concomitant]
  12. TEMAZEPAM [Concomitant]
  13. TRIMETHOPRIM [Concomitant]

REACTIONS (2)
  - Renal failure chronic [Not Recovered/Not Resolved]
  - Glomerular filtration rate decreased [Not Recovered/Not Resolved]
